FAERS Safety Report 19467408 (Version 2)
Quarter: 2021Q3

REPORT INFORMATION
  Report Type: Spontaneous
  Country: CO (occurrence: CO)
  Receive Date: 20210628
  Receipt Date: 20210721
  Transmission Date: 20211014
  Serious: Yes (Other)
  Sender: FDA-Public Use
  Company Number: CO-AMGEN-COLSP2021096413

PATIENT
  Age: 83 Year
  Sex: Female
  Weight: 67 kg

DRUGS (4)
  1. MVASI [Suspect]
     Active Substance: BEVACIZUMAB-AWWB
     Indication: RECTAL CANCER
     Dosage: 330 MILLIGRAM, EVERY 15 DAYS
     Route: 065
     Dates: start: 20201228
  2. CALCIUM FOLINATE [Concomitant]
     Active Substance: LEUCOVORIN CALCIUM
     Indication: RECTAL CANCER
     Dosage: 700 MILLIGRAM, EVERY 15 DAYS
     Dates: start: 20201125
  3. OXALIPLATIN. [Concomitant]
     Active Substance: OXALIPLATIN
     Indication: RECTAL CANCER
     Dosage: 113 MILLIGRAM, EVERY 15 DAYS
     Dates: start: 20201125, end: 20210617
  4. FLUOROURACIL. [Concomitant]
     Active Substance: FLUOROURACIL
     Indication: RECTAL CANCER
     Dosage: 4220 MILLIGRAM, EVERY 15 DAYS
     Dates: start: 20201125

REACTIONS (1)
  - Thrombocytopenia [Recovered/Resolved]

NARRATIVE: CASE EVENT DATE: 20210309
